FAERS Safety Report 19584236 (Version 3)
Quarter: 2021Q4

REPORT INFORMATION
  Report Type: Spontaneous
  Country: US (occurrence: US)
  Receive Date: 20210720
  Receipt Date: 20211102
  Transmission Date: 20220303
  Serious: No
  Sender: FDA-Public Use
  Company Number: US-BAYER-2021-178832

PATIENT
  Age: 44 Year
  Sex: Female

DRUGS (4)
  1. MIRENA [Suspect]
     Active Substance: LEVONORGESTREL
     Indication: Polymenorrhagia
     Dosage: 20?G/DAY
     Route: 015
     Dates: start: 20210412
  2. MIRENA [Suspect]
     Active Substance: LEVONORGESTREL
     Indication: Contraception
  3. COSENTYX [Concomitant]
     Active Substance: SECUKINUMAB
  4. HUMIRA [Concomitant]
     Active Substance: ADALIMUMAB

REACTIONS (4)
  - Burning sensation [None]
  - Pruritus [None]
  - Medical device pain [None]
  - Drug hypersensitivity [None]

NARRATIVE: CASE EVENT DATE: 20210601
